FAERS Safety Report 22089568 (Version 2)
Quarter: 2023Q1

REPORT INFORMATION
  Report Type: Spontaneous
  Country: US (occurrence: None)
  Receive Date: 20230313
  Receipt Date: 20230317
  Transmission Date: 20230417
  Serious: Yes (Hospitalization)
  Sender: FDA-Public Use
  Company Number: US-ROCHE-3304802

PATIENT
  Age: 67 Year
  Sex: Male

DRUGS (1)
  1. GAZYVA [Suspect]
     Active Substance: OBINUTUZUMAB
     Indication: Chronic lymphocytic leukaemia
     Dosage: FOR 6 CYCLES OF OBINUTUZUMAB 100MG D1, 900MG D2, 1000 MG D8 AND 1000MG D15 OF C1 WITH SUBSEQUENT DOS
     Route: 042
     Dates: start: 202302

REACTIONS (3)
  - Chills [Not Recovered/Not Resolved]
  - Acute myocardial infarction [Not Recovered/Not Resolved]
  - Pulmonary oedema [Not Recovered/Not Resolved]

NARRATIVE: CASE EVENT DATE: 20230201
